FAERS Safety Report 14443471 (Version 1)
Quarter: 2018Q1

REPORT INFORMATION
  Report Type: Spontaneous
  Country: US (occurrence: US)
  Receive Date: 20180125
  Receipt Date: 20180125
  Transmission Date: 20180509
  Serious: No
  Sender: FDA-Public Use
  Company Number: None

PATIENT
  Age: 30 Year
  Sex: Female

DRUGS (1)
  1. TENOFOVIR DISOPROXIL FUMARATE. [Suspect]
     Active Substance: TENOFOVIR DISOPROXIL FUMARATE
     Indication: CHRONIC HEPATITIS B
     Route: 048
     Dates: start: 20180117

REACTIONS (5)
  - Headache [None]
  - Heart rate increased [None]
  - Decreased appetite [None]
  - Drug intolerance [None]
  - Back pain [None]

NARRATIVE: CASE EVENT DATE: 20180117
